FAERS Safety Report 21058188 (Version 1)
Quarter: 2022Q3

REPORT INFORMATION
  Report Type: Spontaneous
  Country: US (occurrence: US)
  Receive Date: 20220708
  Receipt Date: 20220708
  Transmission Date: 20221026
  Serious: No
  Sender: FDA-Public Use
  Company Number: US-UPSHER-SMITH LABORATORIES, LLC-2022USL00241

PATIENT
  Sex: Male
  Weight: 77.098 kg

DRUGS (1)
  1. ISOTRETINOIN [Suspect]
     Active Substance: ISOTRETINOIN
     Indication: Acne
     Dosage: 30 MG, 1X/DAY
     Route: 048
     Dates: start: 20220228, end: 20220312

REACTIONS (6)
  - Impetigo [Unknown]
  - Nasal congestion [Unknown]
  - Dry mouth [Unknown]
  - Nasal dryness [Unknown]
  - Dry eye [Unknown]
  - Chapped lips [Unknown]

NARRATIVE: CASE EVENT DATE: 20220101
